FAERS Safety Report 9869974 (Version 1)
Quarter: 2014Q1

REPORT INFORMATION
  Report Type: Spontaneous
  Country: US (occurrence: None)
  Receive Date: 20140203
  Receipt Date: 20140203
  Transmission Date: 20141002
  Serious: Yes (Hospitalization)
  Sender: FDA-Public Use
  Company Number: 2014-000125

PATIENT
  Age: 85 Year
  Sex: Female

DRUGS (6)
  1. ASACOL (MESALAZINE) MODIFIED-RELEASE TABLET, 400 MG [Suspect]
     Indication: DIARRHOEA
     Route: 048
     Dates: start: 20120312, end: 20120718
  2. TIROSINT [Concomitant]
  3. VERAPAMIL [Concomitant]
  4. EXFORGE [Concomitant]
  5. COREG [Concomitant]
  6. KLONOPIN [Concomitant]

REACTIONS (5)
  - Peritonitis bacterial [None]
  - Intestinal perforation [None]
  - Abdominal pain [None]
  - Drug ineffective for unapproved indication [None]
  - Klebsiella infection [None]
